FAERS Safety Report 6805964-4 (Version None)
Quarter: 2010Q2

REPORT INFORMATION
  Report Type: 
  Country: None (occurrence: None)
  Receive Date: 20100628
  Receipt Date: 20100628
  Transmission Date: 20101027
  Serious: Yes (Other)
  Sender: FDA-Public Use
  Company Number: None

PATIENT
  Sex: Male
  Weight: 127.0072 kg

DRUGS (1)
  1. MIRTAZAPINE [Suspect]
     Indication: INSOMNIA
     Dosage: 15MG 1X NIGHT - PO
     Route: 048
     Dates: start: 20100620, end: 20100621

REACTIONS (4)
  - NARCOLEPSY [None]
  - NAUSEA [None]
  - PANIC ATTACK [None]
  - VERTIGO [None]
